FAERS Safety Report 13026028 (Version 1)
Quarter: 2016Q4

REPORT INFORMATION
  Report Type: Spontaneous
  Country: US (occurrence: US)
  Receive Date: 20161214
  Receipt Date: 20161214
  Transmission Date: 20170207
  Serious: No
  Sender: FDA-Public Use
  Company Number: US-JNJFOC-20161117171

PATIENT
  Sex: Male

DRUGS (1)
  1. INVEGA [Suspect]
     Active Substance: PALIPERIDONE
     Indication: TOURETTE^S DISORDER
     Route: 048

REACTIONS (6)
  - Asthenia [Not Recovered/Not Resolved]
  - Product use issue [Unknown]
  - Inappropriate schedule of drug administration [Unknown]
  - Sinus congestion [Not Recovered/Not Resolved]
  - Off label use [Unknown]
  - Hypersensitivity [Not Recovered/Not Resolved]
